FAERS Safety Report 7769264-0 (Version None)
Quarter: 2011Q3

REPORT INFORMATION
  Report Type: 
  Country: None (occurrence: None)
  Receive Date: 20110922
  Receipt Date: 20110921
  Transmission Date: 20111222
  Serious: Yes (Other)
  Sender: FDA-Public Use
  Company Number: US-PFIZER INC-2011224648

PATIENT
  Sex: Female
  Weight: 82 kg

DRUGS (6)
  1. METFORMIN [Concomitant]
     Indication: DIABETES MELLITUS
     Dosage: UNK
  2. SIMVASTATIN [Concomitant]
     Indication: BLOOD CHOLESTEROL INCREASED
     Dosage: UNK
  3. CHLORTHALIDONE [Concomitant]
     Indication: HYPERTENSION
     Dosage: UNK
  4. LOSARTAN [Concomitant]
     Indication: HYPERTENSION
     Dosage: UNK
  5. CHANTIX [Suspect]
     Dosage: UNK
     Route: 048
     Dates: start: 20110901
  6. CHANTIX [Suspect]
     Indication: SMOKING CESSATION THERAPY
     Dosage: 0.5 MG, UNK
     Route: 048
     Dates: start: 20110910, end: 20110901

REACTIONS (2)
  - HYPERSENSITIVITY [None]
  - RASH [None]
